FAERS Safety Report 7690237-0 (Version None)
Quarter: 2011Q3

REPORT INFORMATION
  Report Type: 
  Country: None (occurrence: None)
  Receive Date: 20110818
  Receipt Date: 20110812
  Transmission Date: 20111222
  Serious: No
  Sender: FDA-Public Use
  Company Number: US-PFIZER INC-2011188442

PATIENT
  Age: 48 Year
  Sex: Male

DRUGS (2)
  1. TORISEL [Suspect]
     Indication: RENAL CANCER
  2. SUTENT [Suspect]
     Indication: RENAL CANCER

REACTIONS (2)
  - DISEASE PROGRESSION [None]
  - RENAL CANCER [None]
